FAERS Safety Report 5212173-1 (Version None)
Quarter: 2007Q1

REPORT INFORMATION
  Report Type: 
  Country: None (occurrence: None)
  Receive Date: 20070118
  Receipt Date: 20070111
  Transmission Date: 20070707
  Serious: Yes (Other)
  Sender: FDA-Public Use
  Company Number: PT-BRISTOL-MYERS SQUIBB COMPANY-13551247

PATIENT
  Age: 58 Year
  Sex: Female

DRUGS (4)
  1. COAPROVEL [Suspect]
  2. FLUDEX [Concomitant]
  3. ASPIRIN [Concomitant]
  4. RISIDON [Concomitant]

REACTIONS (2)
  - HYPERSENSITIVITY [None]
  - PNEUMONIA [None]
